FAERS Safety Report 9233368 (Version 3)
Quarter: 2013Q3

REPORT INFORMATION
  Report Type: Spontaneous
  Country: FI (occurrence: FI)
  Receive Date: 20130416
  Receipt Date: 20130704
  Transmission Date: 20140515
  Serious: Yes (Hospitalization, Other)
  Sender: FDA-Public Use
  Company Number: FI-PFIZER INC-2013115222

PATIENT
  Age: 68 Year
  Sex: Female
  Weight: 67 kg

DRUGS (9)
  1. SUTENT [Suspect]
     Indication: RENAL CANCER METASTATIC
     Dosage: 37.5 MG, CYCLIC
     Route: 048
     Dates: start: 20120625, end: 201207
  2. SUTENT [Suspect]
     Dosage: 25 MG, CYCLIC
     Dates: start: 20120801
  3. SUTENT [Suspect]
     Dosage: 25 MG, 1X/DAY CYCLIC
     Route: 048
     Dates: start: 20130227, end: 20130308
  4. DEXAMETASON [Concomitant]
     Dosage: 1.5 MG, 3+3
  5. JANUVIA [Concomitant]
     Dosage: 100 MG, 1X/DAY
  6. KALEROID [Concomitant]
     Dosage: 750 MG, 1X1
  7. KLEXANE [Concomitant]
     Dosage: 40 MG, 1X1
     Route: 058
  8. ORMOX [Concomitant]
     Dosage: 20 MG, 1X2
  9. SPESICOR DOS [Concomitant]
     Dosage: 190 MG, 1/2X1

REACTIONS (4)
  - Sialoadenitis [Recovered/Resolved]
  - Myocardial infarction [Unknown]
  - Disease progression [Unknown]
  - Renal cancer metastatic [Unknown]
